APPROVED DRUG PRODUCT: FENOPROFEN CALCIUM
Active Ingredient: FENOPROFEN CALCIUM
Strength: EQ 600MG BASE
Dosage Form/Route: TABLET;ORAL
Application: A072557 | Product #001
Applicant: IVAX PHARMACEUTICALS INC SUB TEVA PHARMACEUTICALS USA
Approved: Aug 29, 1988 | RLD: No | RS: No | Type: DISCN